FAERS Safety Report 9351853 (Version 4)
Quarter: 2013Q3

REPORT INFORMATION
  Report Type: Spontaneous
  Country: JP (occurrence: JP)
  Receive Date: 20130617
  Receipt Date: 20130716
  Transmission Date: 20140515
  Serious: Yes (Hospitalization, Other)
  Sender: FDA-Public Use
  Company Number: JP-B.I. PHARMACEUTICALS,INC./RIDGEFIELD-2013-BI-16985NB

PATIENT
  Age: 79 Year
  Sex: Female
  Weight: 57.5 kg

DRUGS (29)
  1. PRADAXA [Suspect]
     Dosage: 220 MG
     Route: 048
  2. ELPLAT [Suspect]
     Indication: COLON CANCER
     Dosage: 100 MG
     Route: 042
     Dates: start: 20130513
  3. LEVOFOLINATE [Suspect]
     Indication: COLON CANCER
     Dosage: 300 MG
     Route: 042
     Dates: start: 20130513
  4. 5-FU [Suspect]
     Indication: COLON CANCER
     Dosage: 500 MG
     Route: 042
     Dates: start: 20130513
  5. ERBITUX [Suspect]
     Indication: COLON CANCER
     Dosage: 600 MG
     Route: 042
     Dates: start: 20130513
  6. CIBENOL [Suspect]
     Dosage: 100 MG
     Route: 048
     Dates: end: 20130612
  7. LIPITOR [Concomitant]
     Dosage: 10 MG
     Route: 048
     Dates: end: 20130612
  8. LIPITOR [Concomitant]
     Dosage: 10 MG
     Route: 048
     Dates: start: 200303, end: 200803
  9. CIBENOL [Concomitant]
     Dosage: 100 MG
     Route: 048
     Dates: end: 20130612
  10. DIOVAN [Concomitant]
     Dosage: 80 MG
     Route: 048
     Dates: end: 20130612
  11. DIOVAN [Concomitant]
     Dosage: 80 MG
     Route: 048
     Dates: start: 200303, end: 200803
  12. BAYASPIRIN [Concomitant]
     Dosage: 100 MG
     Route: 048
     Dates: end: 20130612
  13. BAYASPIRIN [Concomitant]
     Dosage: 100 MG
     Route: 048
     Dates: start: 200303, end: 200803
  14. FLUITRAN [Concomitant]
     Dosage: 2 MG
     Route: 048
     Dates: end: 20130612
  15. MAINTATE [Concomitant]
     Dosage: 2.5 MG
     Route: 048
     Dates: end: 20130612
  16. PROMAC [Concomitant]
     Indication: PROPHYLAXIS
     Dosage: 150 MG
     Route: 048
     Dates: end: 20130612
  17. GOSHAJINKIGAN [Concomitant]
     Indication: PROPHYLAXIS
     Dosage: 7.5 G
     Route: 048
     Dates: end: 20130612
  18. URSODEOXYCHOLIC ACID [Concomitant]
     Indication: METASTASES TO LIVER
     Dosage: 600 MG
     Route: 048
     Dates: end: 20130612
  19. MAGMITT [Concomitant]
     Dosage: 990 MG
     Route: 048
     Dates: end: 20130612
  20. MUCOSTA [Concomitant]
     Dosage: 300 MG
     Route: 048
     Dates: end: 20130612
  21. LOXOPROFEN [Concomitant]
     Dosage: 180 MG
     Route: 048
     Dates: end: 20130612
  22. MINOMYCIN [Concomitant]
     Indication: PROPHYLAXIS
     Dosage: 200 MG
     Route: 048
     Dates: end: 20130612
  23. DECADRON [Concomitant]
     Indication: COLON CANCER
     Dosage: 8 MG
     Route: 048
     Dates: start: 20130513
  24. DEXART [Concomitant]
     Indication: COLON CANCER
     Dosage: 9.9 MG
     Route: 042
     Dates: start: 20130513
  25. ALOXI [Concomitant]
     Indication: COLON CANCER
     Dosage: 0.75 MG
     Route: 042
     Dates: start: 20130513
  26. GLUCOSE [Concomitant]
     Indication: COLON CANCER
     Dosage: 250 ML
     Route: 042
     Dates: start: 20130513
  27. NOVO HEPARIN [Concomitant]
     Indication: COLON CANCER
     Dosage: 5000 U
     Route: 042
     Dates: start: 20130513
  28. ISOTONIC SODIUM CHLORIDE SOLUTION [Concomitant]
     Indication: COLON CANCER
     Dosage: 500 ML
     Route: 042
     Dates: start: 20130513
  29. POLARAMINE [Concomitant]
     Indication: PROPHYLAXIS
     Dosage: 5 MG
     Route: 042
     Dates: start: 20130527

REACTIONS (4)
  - Renal impairment [Recovered/Resolved]
  - Dehydration [Recovered/Resolved]
  - Hypoglycaemia [Recovered/Resolved]
  - Altered state of consciousness [Recovered/Resolved]
